FAERS Safety Report 6427143-5 (Version None)
Quarter: 2009Q4

REPORT INFORMATION
  Report Type: 
  Country: None (occurrence: None)
  Receive Date: 20091104
  Receipt Date: 20091028
  Transmission Date: 20100525
  Serious: Yes (Other)
  Sender: FDA-Public Use
  Company Number: AR-JNJFOC-20091007761

PATIENT
  Sex: Female
  Weight: 68 kg

DRUGS (35)
  1. GOLIMUMAB [Suspect]
     Route: 058
  2. GOLIMUMAB [Suspect]
     Route: 058
  3. GOLIMUMAB [Suspect]
     Route: 058
  4. GOLIMUMAB [Suspect]
     Route: 058
  5. GOLIMUMAB [Suspect]
     Route: 058
  6. GOLIMUMAB [Suspect]
     Route: 058
  7. GOLIMUMAB [Suspect]
     Route: 058
  8. GOLIMUMAB [Suspect]
     Route: 058
  9. GOLIMUMAB [Suspect]
     Route: 058
  10. GOLIMUMAB [Suspect]
     Route: 058
  11. GOLIMUMAB [Suspect]
     Route: 058
  12. GOLIMUMAB [Suspect]
     Route: 058
  13. GOLIMUMAB [Suspect]
     Route: 058
  14. GOLIMUMAB [Suspect]
     Route: 058
  15. GOLIMUMAB [Suspect]
     Route: 058
  16. GOLIMUMAB [Suspect]
     Indication: RHEUMATOID ARTHRITIS
     Route: 058
  17. METHOTREXATE [Suspect]
     Route: 048
  18. METHOTREXATE [Suspect]
     Route: 048
  19. METHOTREXATE [Suspect]
     Route: 048
  20. METHOTREXATE [Suspect]
     Route: 048
  21. METHOTREXATE [Suspect]
     Route: 048
  22. METHOTREXATE [Suspect]
     Route: 048
  23. METHOTREXATE [Suspect]
     Route: 048
  24. METHOTREXATE [Suspect]
     Indication: RHEUMATOID ARTHRITIS
     Route: 048
  25. METHOTREXATE [Concomitant]
     Route: 048
  26. SYSTANE [Concomitant]
     Route: 047
  27. LEVOTIROXINA [Concomitant]
     Route: 048
  28. DICLOFENAC [Concomitant]
     Route: 048
  29. FOLIC ACID [Concomitant]
     Route: 048
  30. FLUCONAZOLE [Concomitant]
     Route: 048
  31. OMEPRAZOLE [Concomitant]
     Route: 048
  32. PREDNISONE TAB [Concomitant]
     Route: 048
  33. TIZANIDINE HCL [Concomitant]
     Route: 048
  34. ASCORBIC ACID [Concomitant]
     Route: 048
  35. DIAZEPAM [Concomitant]
     Route: 048

REACTIONS (1)
  - INTERVERTEBRAL DISCITIS [None]
